FAERS Safety Report 24105593 (Version 2)
Quarter: 2024Q4

REPORT INFORMATION
  Report Type: Report from Study
  Country: ES (occurrence: ES)
  Receive Date: 20240717
  Receipt Date: 20241104
  Transmission Date: 20250115
  Serious: Yes (Hospitalization)
  Sender: BAUSCH AND LOMB
  Company Number: ES-SA-SAC20240419000796

PATIENT
  Age: 57 Year
  Sex: Male

DRUGS (17)
  1. DEXAMETHASONE [Suspect]
     Active Substance: DEXAMETHASONE
     Indication: Plasma cell myeloma refractory
     Dosage: 40 MG, QW
     Route: 065
     Dates: start: 20230828, end: 20230924
  2. DEXAMETHASONE [Suspect]
     Active Substance: DEXAMETHASONE
     Dosage: 40 MG, QW
     Route: 065
     Dates: start: 20230925, end: 20231022
  3. ISATUXIMAB [Suspect]
     Active Substance: ISATUXIMAB
     Indication: Plasma cell myeloma refractory
     Dosage: 530 MG, QW
     Route: 065
     Dates: start: 20230828, end: 20230924
  4. ISATUXIMAB [Suspect]
     Active Substance: ISATUXIMAB
     Dosage: 530 MG, BIW
     Route: 065
     Dates: start: 20230925, end: 20231022
  5. ISATUXIMAB [Suspect]
     Active Substance: ISATUXIMAB
     Dosage: 530 MG, BIW
     Route: 065
     Dates: start: 20231023, end: 20231119
  6. POMALIDOMIDE [Suspect]
     Active Substance: POMALIDOMIDE
     Indication: Plasma cell myeloma refractory
     Dosage: 4 MG, QD (D1-D21)
     Route: 065
     Dates: start: 20230828, end: 20230924
  7. POMALIDOMIDE [Suspect]
     Active Substance: POMALIDOMIDE
     Dosage: 3 MG, QD (D1-D21)
     Route: 065
     Dates: start: 20230925, end: 20231022
  8. POMALIDOMIDE [Suspect]
     Active Substance: POMALIDOMIDE
     Dosage: 3 MG, QD (D1-D21)
     Route: 065
     Dates: start: 20231023, end: 20231120
  9. ASPIRIN [Concomitant]
     Active Substance: ASPIRIN
     Indication: Prophylaxis
     Dosage: UNK
     Dates: start: 20230828
  10. DEXCHLORPHENIRAMINE [Concomitant]
     Active Substance: DEXCHLORPHENIRAMINE
     Indication: Premedication
     Dosage: UNK, FREQUENCY: EVERY ISATUXIMAB INFUSION
     Dates: start: 20230828
  11. SULFAMETHOXAZOLE\TRIMETHOPRIM [Concomitant]
     Active Substance: SULFAMETHOXAZOLE\TRIMETHOPRIM
     Indication: Prophylaxis
     Dosage: UNK
     Dates: start: 20230828
  12. OMEPRAZOLE [Concomitant]
     Active Substance: OMEPRAZOLE
     Indication: Prophylaxis
     Dosage: UNK
     Dates: start: 20230828
  13. CHOLECALCIFEROL [Concomitant]
     Active Substance: CHOLECALCIFEROL
     Indication: Prophylaxis
     Dosage: UNK
     Dates: start: 20230828
  14. ACETAMINOPHEN [Concomitant]
     Active Substance: ACETAMINOPHEN
     Indication: Premedication
     Dosage: UNK, FREQUENCY: EVERY ISATUXIMAB INFUSION
     Dates: start: 20230828
  15. MONTELUKAST [Concomitant]
     Active Substance: MONTELUKAST
     Indication: Prophylaxis
     Dosage: UNK
     Dates: start: 20230828
  16. RANITIDINE [Concomitant]
     Active Substance: RANITIDINE
     Indication: Premedication
     Dosage: UNK, FREQUENCY: EVERY ISATUXIMAB INFUSION
     Dates: start: 20230828
  17. CALCIUM [Concomitant]
     Active Substance: CALCIUM
     Indication: Prophylaxis
     Dosage: UNK
     Dates: start: 20230828

REACTIONS (4)
  - Febrile neutropenia [Recovered/Resolved]
  - Angina pectoris [Not Recovered/Not Resolved]
  - Paraesthesia [Recovering/Resolving]
  - Cellulitis [Recovered/Resolved]

NARRATIVE: CASE EVENT DATE: 20230915
